FAERS Safety Report 24055416 (Version 1)
Quarter: 2024Q3

REPORT INFORMATION
  Report Type: Spontaneous
  Country: US (occurrence: None)
  Receive Date: 20240703
  Receipt Date: 20240703
  Transmission Date: 20241016
  Serious: Yes (Life-Threatening, Hospitalization, Other)
  Sender: Public
  Company Number: None

PATIENT
  Age: 30 Year
  Sex: Male
  Weight: 69.75 kg

DRUGS (5)
  1. LEXAPRO [Suspect]
     Active Substance: ESCITALOPRAM OXALATE
     Indication: Anxiety
     Dosage: 1 TABLET DAILY ORAL
     Route: 048
     Dates: start: 20240529, end: 20240610
  2. LEXAPRO [Suspect]
     Active Substance: ESCITALOPRAM OXALATE
     Indication: Depression
  3. ZYPREXA [Suspect]
     Active Substance: OLANZAPINE
  4. HYDROXYZINE [Concomitant]
     Active Substance: HYDROXYZINE HYDROCHLORIDE
  5. UNSPECIFIED INGREDIENT [Concomitant]
     Active Substance: UNSPECIFIED INGREDIENT

REACTIONS (11)
  - Insomnia [None]
  - Panic attack [None]
  - Intrusive thoughts [None]
  - Circumstance or information capable of leading to medication error [None]
  - Panic reaction [None]
  - Product prescribing error [None]
  - Suicidal ideation [None]
  - Anxiety [None]
  - Depression [None]
  - Product communication issue [None]
  - Communication disorder [None]

NARRATIVE: CASE EVENT DATE: 20240607
